FAERS Safety Report 13178541 (Version 1)
Quarter: 2017Q1

REPORT INFORMATION
  Report Type: Report from Study
  Country: US (occurrence: US)
  Receive Date: 20170202
  Receipt Date: 20170202
  Transmission Date: 20170428
  Serious: Yes (Death, Hospitalization)
  Sender: FDA-Public Use
  Company Number: US-ROCHE-1886071

PATIENT
  Age: 74 Year

DRUGS (1)
  1. BEVACIZUMAB [Suspect]
     Active Substance: BEVACIZUMAB
     Indication: ANGIOSARCOMA METASTATIC
     Route: 065

REACTIONS (9)
  - Thrombocytopenia [Unknown]
  - Coagulopathy [Unknown]
  - Pyrexia [Unknown]
  - Neoplasm progression [Fatal]
  - Bone marrow infiltration [Unknown]
  - Pain [Unknown]
  - Facial asymmetry [Unknown]
  - Hepatic function abnormal [Unknown]
  - Haemorrhage [Unknown]

NARRATIVE: CASE EVENT DATE: 20110926
